FAERS Safety Report 9353641 (Version 1)
Quarter: 2013Q2

REPORT INFORMATION
  Report Type: Spontaneous
  Country: US (occurrence: None)
  Receive Date: 20130617
  Receipt Date: 20130617
  Transmission Date: 20140414
  Serious: Yes (Hospitalization)
  Sender: FDA-Public Use
  Company Number: None

PATIENT
  Age: 43 Year
  Sex: Male
  Weight: 120.2 kg

DRUGS (1)
  1. ALPRAZOLAM [Suspect]
     Indication: GENERALISED ANXIETY DISORDER
     Route: 048
     Dates: start: 20130610, end: 20130610

REACTIONS (4)
  - Product substitution issue [None]
  - Drug effect decreased [None]
  - Anxiety [None]
  - Product quality issue [None]
